FAERS Safety Report 8468181-0 (Version None)
Quarter: 2012Q2

REPORT INFORMATION
  Report Type: 
  Country: None (occurrence: None)
  Receive Date: 20120626
  Receipt Date: 20120614
  Transmission Date: 20120825
  Serious: Yes (Death, Hospitalization)
  Sender: FDA-Public Use
  Company Number: DE-ROCHE-1064293

PATIENT
  Sex: Male
  Weight: 90 kg

DRUGS (9)
  1. PEGASYS [Suspect]
     Indication: HEPATITIS C
     Route: 058
     Dates: start: 20111116, end: 20120401
  2. COPEGUS [Suspect]
     Indication: HEPATITIS C
     Route: 048
     Dates: start: 20111116, end: 20120401
  3. FOSINOPRIL SODIUM [Concomitant]
     Indication: HYPERTENSION
     Route: 048
     Dates: end: 20120401
  4. THEOPHYLLINE [Concomitant]
     Indication: CHRONIC OBSTRUCTIVE PULMONARY DISEASE
     Route: 048
     Dates: end: 20120401
  5. MIRTAZAPINE [Concomitant]
     Indication: DEPRESSION
     Route: 048
     Dates: start: 20111116, end: 20120401
  6. TELAPREVIR [Concomitant]
     Indication: HEPATITIS C
     Dates: start: 20111116, end: 20120208
  7. OMEPRAZOLE [Concomitant]
     Dosage: INDICATION: REFLUX DISEASE
     Route: 048
     Dates: end: 20120401
  8. BUDECORT [Concomitant]
     Indication: CHRONIC OBSTRUCTIVE PULMONARY DISEASE
     Route: 055
     Dates: end: 20120401
  9. PREDNISOLONE [Concomitant]
     Indication: CHRONIC OBSTRUCTIVE PULMONARY DISEASE
     Route: 048
     Dates: end: 20120401

REACTIONS (3)
  - FEBRILE INFECTION [None]
  - URINARY TRACT INFECTION [None]
  - SEPSIS [None]
